FAERS Safety Report 19799527 (Version 2)
Quarter: 2021Q3

REPORT INFORMATION
  Report Type: Report from Study
  Country: FR (occurrence: FR)
  Receive Date: 20210907
  Receipt Date: 20210921
  Transmission Date: 20211014
  Serious: Yes (Death, Hospitalization)
  Sender: FDA-Public Use
  Company Number: FR-EXELIXIS-XL18421043807

PATIENT

DRUGS (8)
  1. VOGALENE [Concomitant]
     Active Substance: METOPIMAZINE
  2. REPAGLINIDE. [Concomitant]
     Active Substance: REPAGLINIDE
     Indication: DIABETES MELLITUS
  3. PARACETAMOL [Concomitant]
     Active Substance: ACETAMINOPHEN
  4. XL184 [Suspect]
     Active Substance: CABOZANTINIB
     Indication: CERVIX CARCINOMA
     Dosage: 60 MG, QD
     Route: 048
     Dates: start: 20210607, end: 20210802
  5. TELMISARTAN. [Concomitant]
     Active Substance: TELMISARTAN
     Indication: HYPERTENSION
  6. MAGNESIUM LACTATE;PYRIDOXINE HYDROCHLORIDE [Concomitant]
     Active Substance: MAGNESIUM LACTATE\PYRIDOXINE HYDROCHLORIDE
  7. XL184 [Suspect]
     Active Substance: CABOZANTINIB
     Dosage: 40 MG, QD
     Route: 048
     Dates: start: 20210803, end: 20210810
  8. INNOHEP [Concomitant]
     Active Substance: TINZAPARIN SODIUM

REACTIONS (1)
  - General physical health deterioration [Fatal]

NARRATIVE: CASE EVENT DATE: 20210810
